FAERS Safety Report 15977095 (Version 1)
Quarter: 2019Q1

REPORT INFORMATION
  Report Type: Spontaneous
  Country: US (occurrence: US)
  Receive Date: 20190218
  Receipt Date: 20190218
  Transmission Date: 20190418
  Serious: No
  Sender: FDA-Public Use
  Company Number: US-BAYER-2019-034434

PATIENT
  Age: 55 Year
  Sex: Male
  Weight: 95 kg

DRUGS (2)
  1. MULTIVITAMIN [VITAMINS NOS] [Concomitant]
     Dosage: UNK
  2. MIRALAX [Suspect]
     Active Substance: POLYETHYLENE GLYCOL 3350
     Indication: GASTROINTESTINAL DISORDER
     Dosage: UNK
     Route: 048
     Dates: start: 20190208, end: 20190215

REACTIONS (4)
  - Product quality issue [None]
  - Drug ineffective [None]
  - Poor quality product administered [None]
  - Incorrect dose administered [None]

NARRATIVE: CASE EVENT DATE: 20190208
